FAERS Safety Report 18220524 (Version 1)
Quarter: 2020Q3

REPORT INFORMATION
  Report Type: Spontaneous
  Country: GB (occurrence: GB)
  Receive Date: 20200902
  Receipt Date: 20200902
  Transmission Date: 20201103
  Serious: Yes (Other)
  Sender: FDA-Public Use
  Company Number: GB-SUN PHARMACEUTICAL INDUSTRIES LTD-2020R1-258897

PATIENT
  Age: 13 Year
  Sex: Female

DRUGS (1)
  1. DUAC [Suspect]
     Active Substance: BENZOYL PEROXIDE\CLINDAMYCIN PHOSPHATE
     Indication: ACNE
     Dosage: 1 DOSAGE FORM, QD
     Route: 061

REACTIONS (4)
  - Swelling face [Unknown]
  - Swelling of eyelid [Unknown]
  - Eye swelling [Unknown]
  - Erythema [Unknown]
